FAERS Safety Report 4344055-1 (Version None)
Quarter: 2004Q2

REPORT INFORMATION
  Report Type: 
  Country: None (occurrence: None)
  Receive Date: 20040422
  Receipt Date: 20040401
  Transmission Date: 20050107
  Serious: Yes (Hospitalization)
  Sender: FDA-Public Use
  Company Number: US-GLAXOSMITHKLINE-A0505467A

PATIENT
  Age: 66 Year
  Sex: Female
  Weight: 95.2 kg

DRUGS (1)
  1. LAMOTRIGINE [Suspect]
     Indication: NEUROPATHIC PAIN
     Route: 048
     Dates: start: 20040116, end: 20040330

REACTIONS (5)
  - BLOOD GLUCOSE INCREASED [None]
  - CEREBROVASCULAR ACCIDENT [None]
  - CONFUSIONAL STATE [None]
  - DYSARTHRIA [None]
  - HYPERTENSIVE ENCEPHALOPATHY [None]
